FAERS Safety Report 14134304 (Version 1)
Quarter: 2017Q4

REPORT INFORMATION
  Report Type: Report from Study
  Country: RO (occurrence: RO)
  Receive Date: 20171027
  Receipt Date: 20171027
  Transmission Date: 20180321
  Serious: Yes (Death)
  Sender: FDA-Public Use
  Company Number: RO-ASTELLAS-2017US034580

PATIENT
  Sex: Female
  Weight: 37 kg

DRUGS (1)
  1. ERLOTINIB [Suspect]
     Active Substance: ERLOTINIB
     Indication: LUNG ADENOCARCINOMA
     Route: 048
     Dates: start: 2016, end: 2017

REACTIONS (5)
  - Weight decreased [Unknown]
  - Death [Fatal]
  - Renal disorder [Unknown]
  - Asthenia [Unknown]
  - Eating disorder [Unknown]

NARRATIVE: CASE EVENT DATE: 2017
